FAERS Safety Report 8004942-X (Version None)
Quarter: 2011Q4

REPORT INFORMATION
  Report Type: 
  Country: None (occurrence: None)
  Receive Date: 20111219
  Receipt Date: 20111205
  Transmission Date: 20120403
  Serious: Yes (Other)
  Sender: FDA-Public Use
  Company Number: DSA_48368_2011

PATIENT
  Age: 15 Year
  Sex: Female

DRUGS (1)
  1. WELLBUTRIN XL [Suspect]
     Indication: DEPRESSION
     Dosage: 300; 150  MG, QD, ORAL
     Route: 048

REACTIONS (3)
  - ERYTHEMA MULTIFORME [None]
  - DRUG HYPERSENSITIVITY [None]
  - STEVENS-JOHNSON SYNDROME [None]
